FAERS Safety Report 25188395 (Version 1)
Quarter: 2025Q2

REPORT INFORMATION
  Report Type: Spontaneous
  Country: US (occurrence: US)
  Receive Date: 20250411
  Receipt Date: 20250411
  Transmission Date: 20250716
  Serious: Yes (Hospitalization, Other)
  Sender: ALEMBIC
  Company Number: US-ALEMBIC PHARMACUETICALS LIMITED-2025SCAL000325

PATIENT

DRUGS (2)
  1. METOPROLOL TARTRATE [Suspect]
     Active Substance: METOPROLOL TARTRATE
     Indication: Palpitations
     Route: 065
  2. METOPROLOL TARTRATE [Suspect]
     Active Substance: METOPROLOL TARTRATE
     Indication: Arrhythmia

REACTIONS (7)
  - Visual impairment [Unknown]
  - Speech disorder [Unknown]
  - Syncope [Unknown]
  - Nausea [Unknown]
  - Vomiting [Unknown]
  - Bradycardia [Recovering/Resolving]
  - Hypotension [Recovering/Resolving]
